FAERS Safety Report 10785494 (Version 1)
Quarter: 2015Q1

REPORT INFORMATION
  Report Type: Spontaneous
  Country: US (occurrence: US)
  Receive Date: 20150211
  Receipt Date: 20150211
  Transmission Date: 20150721
  Serious: Yes (Hospitalization)
  Sender: FDA-Public Use
  Company Number: US-TEVA-539436USA

PATIENT
  Age: 47 Year
  Sex: Female

DRUGS (1)
  1. TEMOZOLOMIDE. [Suspect]
     Active Substance: TEMOZOLOMIDE
     Dosage: 140 MILLIGRAM DAILY; 5 DAYS PER WEEK DURING RADIATION
     Route: 048
     Dates: start: 20150124

REACTIONS (4)
  - Bedridden [Unknown]
  - Brain neoplasm [Not Recovered/Not Resolved]
  - Aphasia [Unknown]
  - Communication disorder [Unknown]
